FAERS Safety Report 5175904-5 (Version None)
Quarter: 2006Q4

REPORT INFORMATION
  Report Type: 
  Country: None (occurrence: None)
  Receive Date: 20061215
  Receipt Date: 20061211
  Transmission Date: 20070319
  Serious: Yes (Life-Threatening, Hospitalization)
  Sender: FDA-Public Use
  Company Number: ES-GLAXOSMITHKLINE-B0450589A

PATIENT
  Age: 64 Year
  Sex: Female
  Weight: 68 kg

DRUGS (2)
  1. AUGMENTIN '125' [Suspect]
     Indication: ACUTE TONSILLITIS
     Route: 048
     Dates: start: 20060901, end: 20060901
  2. CO-DIOVAN [Concomitant]
     Indication: ESSENTIAL HYPERTENSION
     Route: 048

REACTIONS (3)
  - ABDOMINAL PAIN [None]
  - ASTHENIA [None]
  - MYALGIA [None]
